FAERS Safety Report 8760239 (Version 1)
Quarter: 2012Q4

REPORT INFORMATION
  Report Type: Spontaneous
  Country: US (occurrence: None)
  Receive Date: 20120828
  Receipt Date: 20120828
  Transmission Date: 20130627
  Serious: Yes (Life-Threatening, Other)
  Sender: FDA-Public Use
  Company Number: None

PATIENT
  Age: 46 Year
  Sex: Female
  Weight: 77.11 kg

DRUGS (2)
  1. CARBAMAZEPINE [Suspect]
     Indication: MOOD DISORDER NOS
     Dates: start: 20120502, end: 20120508
  2. CARBAMAZEPINE [Suspect]
     Indication: PANIC DISORDER
     Dates: start: 20120502, end: 20120508

REACTIONS (10)
  - Oropharyngeal pain [None]
  - Heart rate increased [None]
  - Drug ineffective [None]
  - Confusional state [None]
  - Disorientation [None]
  - Speech disorder [None]
  - Toxicity to various agents [None]
  - Headache [None]
  - Fear [None]
  - Gait disturbance [None]
